FAERS Safety Report 4459256-1 (Version None)
Quarter: 2004Q3

REPORT INFORMATION
  Report Type: 
  Country: None (occurrence: None)
  Receive Date: 20040922
  Receipt Date: 20040922
  Transmission Date: 20050211
  Serious: No
  Sender: FDA-Public Use
  Company Number: None

PATIENT
  Sex: Female
  Weight: 70.3075 kg

DRUGS (2)
  1. CYCLOBENZAPRINE HCL [Suspect]
     Indication: MUSCLE SPASMS
     Dosage: 10 MG TID ORAL
     Route: 048
     Dates: start: 20040916, end: 20040920
  2. CYCLOBENZAPRINE HCL [Suspect]
     Indication: MYALGIA
     Dosage: 10 MG TID ORAL
     Route: 048
     Dates: start: 20040916, end: 20040920

REACTIONS (2)
  - DRUG INEFFECTIVE [None]
  - PHARMACEUTICAL PRODUCT COMPLAINT [None]
